FAERS Safety Report 8386312-8 (Version None)
Quarter: 2012Q2

REPORT INFORMATION
  Report Type: 
  Country: None (occurrence: None)
  Receive Date: 20120523
  Receipt Date: 20120510
  Transmission Date: 20120825
  Serious: Yes (Hospitalization, Other)
  Sender: FDA-Public Use
  Company Number: AUR-APL-2009-00072

PATIENT
  Age: 67 Year
  Sex: Female

DRUGS (2)
  1. METFORMIN HCL [Suspect]
     Indication: PRODUCT USED FOR UNKNOWN INDICATION
     Dosage: 1000 MG (2 IN 1 D)
  2. ACARBOSE [Concomitant]

REACTIONS (2)
  - HYPERGLYCAEMIA [None]
  - HEPATITIS CHOLESTATIC [None]
